FAERS Safety Report 20510072 (Version 2)
Quarter: 2024Q1

REPORT INFORMATION
  Report Type: Spontaneous
  Country: None (occurrence: US)
  Receive Date: 20220224
  Receipt Date: 20240123
  Transmission Date: 20240410
  Serious: No
  Sender: FDA-Public Use
  Company Number: US-WES Pharma Inc-2126178

PATIENT
  Sex: Female

DRUGS (2)
  1. OXYCODONE AND ACETAMINOPHEN [Suspect]
     Active Substance: ACETAMINOPHEN\OXYCODONE HYDROCHLORIDE
     Indication: Back pain
     Route: 048
     Dates: start: 202201, end: 2022
  2. SYNTHROID [Concomitant]
     Active Substance: LEVOTHYROXINE SODIUM
     Route: 065

REACTIONS (5)
  - Nausea [Unknown]
  - Vomiting [Unknown]
  - Abdominal discomfort [Unknown]
  - Malaise [Unknown]
  - Product complaint [Unknown]
